FAERS Safety Report 15614864 (Version 2)
Quarter: 2018Q4

REPORT INFORMATION
  Report Type: Spontaneous
  Country: GB (occurrence: GB)
  Receive Date: 20181114
  Receipt Date: 20181121
  Transmission Date: 20190205
  Serious: Yes (Other)
  Sender: FDA-Public Use
  Company Number: GB-TORRENT-00003878

PATIENT
  Age: 39 Year
  Sex: Female

DRUGS (2)
  1. FLUOXETINE [Suspect]
     Active Substance: FLUOXETINE HYDROCHLORIDE
     Indication: DEPRESSION
     Dosage: UNKNOWN
  2. QUETIAPINE. [Interacting]
     Active Substance: QUETIAPINE
     Indication: DEPRESSION
     Dosage: UNKNOWN
     Dates: start: 201411

REACTIONS (2)
  - Drug interaction [Unknown]
  - Restless legs syndrome [Recovered/Resolved]

NARRATIVE: CASE EVENT DATE: 2015
